FAERS Safety Report 19948573 (Version 2)
Quarter: 2021Q4

REPORT INFORMATION
  Report Type: Spontaneous
  Country: CN (occurrence: CN)
  Receive Date: 20211013
  Receipt Date: 20211028
  Transmission Date: 20220303
  Serious: Yes (Other)
  Sender: FDA-Public Use
  Company Number: CN-LUPIN PHARMACEUTICALS INC.-2021-19327

PATIENT
  Age: 80 Year
  Sex: Male

DRUGS (2)
  1. NIACIN [Suspect]
     Active Substance: NIACIN
     Indication: Cerebral infarction
     Dosage: 100 MILLIGRAM (INJECTION) (IV INFUSION)
     Route: 042
     Dates: start: 20180614
  2. SODIUM CHLORIDE [Concomitant]
     Active Substance: SODIUM CHLORIDE
     Indication: Cerebral infarction
     Dosage: 250 MILLILITER, QD
     Route: 042
     Dates: start: 20180614

REACTIONS (3)
  - Hypersensitivity [Recovering/Resolving]
  - Hypoaesthesia [Recovering/Resolving]
  - Oropharyngeal discomfort [Recovering/Resolving]

NARRATIVE: CASE EVENT DATE: 20180614
